FAERS Safety Report 6586338-0 (Version None)
Quarter: 2010Q1

REPORT INFORMATION
  Report Type: 
  Country: None (occurrence: None)
  Receive Date: 20100216
  Receipt Date: 20100216
  Transmission Date: 20100710
  Serious: Yes (Hospitalization)
  Sender: FDA-Public Use
  Company Number: None

PATIENT
  Sex: Male
  Weight: 80.9 kg

DRUGS (4)
  1. CETUXIMAB 50 MG [Suspect]
     Indication: BLADDER CANCER
     Dosage: 400 MG/M2 IST INFUS WEEKLY IV, 250 MG/M2 WEEKLY IV
     Route: 042
     Dates: start: 20091211, end: 20100202
  2. PACLITAXEL [Suspect]
     Indication: BLADDER CANCER
     Dosage: 80-70-60MG/M2 WEEKLY IV
     Route: 042
     Dates: start: 20091211, end: 20100202
  3. BENADRYL [Concomitant]
  4. DEXAMETHASONE [Concomitant]

REACTIONS (2)
  - GENERAL PHYSICAL HEALTH DETERIORATION [None]
  - URINARY TRACT INFECTION [None]
